FAERS Safety Report 20151297 (Version 3)
Quarter: 2022Q2

REPORT INFORMATION
  Report Type: Spontaneous
  Country: JP (occurrence: JP)
  Receive Date: 20211206
  Receipt Date: 20220404
  Transmission Date: 20220721
  Serious: Yes (Other)
  Sender: FDA-Public Use
  Company Number: JP-ONO-2021JP030456

PATIENT
  Age: 82 Year
  Sex: Male
  Weight: 45 kg

DRUGS (1)
  1. OPDIVO [Suspect]
     Active Substance: NIVOLUMAB
     Indication: Gastric cancer recurrent
     Dosage: UNK
     Route: 041
     Dates: start: 201810

REACTIONS (2)
  - Mycobacterium avium complex infection [Recovered/Resolved]
  - Decreased appetite [Unknown]
